FAERS Safety Report 11681652 (Version 1)
Quarter: 2015Q4

REPORT INFORMATION
  Report Type: Spontaneous
  Country: US (occurrence: None)
  Receive Date: 20151028
  Receipt Date: 20151028
  Transmission Date: 20160304
  Serious: Yes (Life-Threatening, Disabling, Other)
  Sender: FDA-Public Use
  Company Number: None

PATIENT
  Age: 42 Year
  Sex: Female
  Weight: 47.63 kg

DRUGS (27)
  1. OLANZAPINE. [Suspect]
     Active Substance: OLANZAPINE
     Indication: LEGAL PROBLEM
     Route: 048
  2. K [Concomitant]
  3. VITAMIN E [Concomitant]
     Active Substance: .ALPHA.-TOCOPHEROL
  4. BIOTIN [Concomitant]
     Active Substance: BIOTIN
  5. LEMON TEA [Concomitant]
  6. HORESTAIL [Concomitant]
  7. VITAMIN B COMPLEX [Concomitant]
     Active Substance: CYANOCOBALAMIN\DEXPANTHENOL\NIACINAMIDE\PYRIDOXINE HYDROCHLORIDE\RIBOFLAVIN 5^-PHOSPHATE SODIUM\THIAMINE HYDROCHLORIDE\VITAMIN B COMPLEX
  8. NIACIN. [Concomitant]
     Active Substance: NIACIN
  9. VITAM A [Concomitant]
  10. FLAXSEED [Concomitant]
     Active Substance: FLAX SEED
  11. FISH OIL [Concomitant]
     Active Substance: FISH OIL
  12. CYSTEINE [Concomitant]
     Active Substance: CYSTEINE
  13. GINGER TEA [Concomitant]
  14. IRON [Concomitant]
     Active Substance: IRON
  15. SELENIUM [Concomitant]
     Active Substance: SELENIUM
  16. ENSURE (LACTOSE TOLERANT) [Concomitant]
  17. KELP [Concomitant]
     Active Substance: KELP
  18. CHOLINE CHLORIDE [Concomitant]
     Active Substance: CHOLINE CHLORIDE
  19. RIBOFLAVIN [Concomitant]
     Active Substance: RIBOFLAVIN
  20. CHAMOMILE [Concomitant]
     Active Substance: CHAMOMILE
  21. EARL GREY AND MILK THISTLE [Concomitant]
  22. SULFAMED/TRIMETHOPRIM [Concomitant]
  23. SADENOSYL-L-METHIONINE [Concomitant]
  24. B6 [Concomitant]
     Active Substance: PYRIDOXINE HYDROCHLORIDE
  25. BLACKBERRY POMEGRANATE TEA [Concomitant]
  26. D3 [Concomitant]
     Active Substance: 25-HYDROXYCHOLECALCIFEROL, 5-TRANS-
  27. GINKGO TEA [Concomitant]

REACTIONS (2)
  - Diarrhoea [None]
  - Liver disorder [None]

NARRATIVE: CASE EVENT DATE: 20141231
